FAERS Safety Report 7808457 (Version 2)
Quarter: 2013Q2

REPORT INFORMATION
  Report Type: Spontaneous
  Country: US (occurrence: None)
  Receive Date: 20101130
  Receipt Date: 20121203
  Transmission Date: 20140414
  Serious: Yes (Hospitalization, Other)
  Sender: FDA-Public Use
  Company Number: 2010SP029016

PATIENT
  Age: 16 Year
  Sex: Female
  Weight: 86.2 kg

DRUGS (4)
  1. NUVARING [Suspect]
     Indication: PRODUCT USED FOR UNKNOWN INDICATION
     Route: 067
     Dates: start: 200909, end: 2010
  2. DEPAKOTE [Concomitant]
  3. SEROQUEL [Concomitant]
  4. WELLBUTRIN (BUPROPION HYDROCHLORIDE) [Concomitant]

REACTIONS (2)
  - CEREBRAL ARTERY THROMBOSIS [None]
  - Emotional disorder [None]
